FAERS Safety Report 9516414 (Version 1)
Quarter: 2013Q3

REPORT INFORMATION
  Report Type: Spontaneous
  Country: DE (occurrence: DE)
  Receive Date: 20130911
  Receipt Date: 20130911
  Transmission Date: 20140515
  Serious: Yes (Other)
  Sender: FDA-Public Use
  Company Number: DE-PFIZER INC-2013260281

PATIENT
  Age: 30 Year
  Sex: Female
  Weight: 95 kg

DRUGS (2)
  1. SERTRALINE HCL [Suspect]
     Indication: DEPRESSION
     Dosage: 50 MG, 1X/DAY
     Route: 048
  2. PAROXET [Concomitant]
     Indication: DEPRESSION
     Dosage: 40 MG, 1X/DAY
     Route: 048

REACTIONS (2)
  - Gestational diabetes [Unknown]
  - Premature labour [Unknown]
